FAERS Safety Report 16959656 (Version 9)
Quarter: 2020Q3

REPORT INFORMATION
  Report Type: Spontaneous
  Country: NL (occurrence: NL)
  Receive Date: 20191025
  Receipt Date: 20200929
  Transmission Date: 20201102
  Serious: Yes (Hospitalization, Disabling)
  Sender: FDA-Public Use
  Company Number: NL-TEVA-2019-NL-1127141

PATIENT
  Age: 83 Year
  Sex: Female
  Weight: 85 kg

DRUGS (1)
  1. AMOXICILLINE/CLAVULAANZUUR TABLET 500/125MG / BRAND NAME NOT SPECIFIED [Suspect]
     Active Substance: AMOXICILLIN\CLAVULANIC ACID
     Indication: WOUND
     Dosage: 1 DOSAGE FORMS, 3D625,  THERAPY END DATE : ASKU
     Route: 065
     Dates: start: 20190828

REACTIONS (1)
  - Meningitis aseptic [Recovering/Resolving]

NARRATIVE: CASE EVENT DATE: 20190830
